FAERS Safety Report 17996974 (Version 1)
Quarter: 2020Q3

REPORT INFORMATION
  Report Type: Spontaneous
  Country: FR (occurrence: FR)
  Receive Date: 20200709
  Receipt Date: 20200709
  Transmission Date: 20201103
  Serious: Yes (Hospitalization)
  Sender: FDA-Public Use
  Company Number: FR-SUN PHARMACEUTICAL INDUSTRIES LTD-2020RR-252841

PATIENT
  Age: 60 Year
  Sex: Male

DRUGS (2)
  1. ARTICHAUT [CYNARA CARDUNCULUS] [Suspect]
     Active Substance: HERBALS\HOMEOPATHICS
     Indication: WEIGHT DECREASED
     Dosage: ()
     Route: 048
     Dates: start: 201910
  2. PARACETAMOL [Suspect]
     Active Substance: ACETAMINOPHEN
     Indication: PAIN
     Dosage: 1 DOSAGE FORM, UNK
     Route: 048

REACTIONS (1)
  - Pancreatitis acute [Recovered/Resolved]

NARRATIVE: CASE EVENT DATE: 20191228
